FAERS Safety Report 18667789 (Version 2)
Quarter: 2021Q1

REPORT INFORMATION
  Report Type: Spontaneous
  Country: JP (occurrence: JP)
  Receive Date: 20201228
  Receipt Date: 20210118
  Transmission Date: 20210419
  Serious: Yes (Other)
  Sender: FDA-Public Use
  Company Number: JP-TEVA-2020-JP-007644J

PATIENT
  Age: 78 Year
  Sex: Female

DRUGS (6)
  1. REBAMIPIDE [Concomitant]
     Active Substance: REBAMIPIDE
     Dosage: 300 MILLIGRAM DAILY;
     Route: 048
     Dates: start: 201711
  2. NESINA [Concomitant]
     Active Substance: ALOGLIPTIN BENZOATE
     Indication: DIABETES MELLITUS
     Dosage: 25 MILLIGRAM DAILY;
     Route: 048
     Dates: start: 202007
  3. FENOFIBRATE TABLET 80MG  ^TAKEDA TEVA^ [Suspect]
     Active Substance: FENOFIBRATE
     Route: 048
  4. CANDESARTAN CILEXETIL. [Concomitant]
     Active Substance: CANDESARTAN CILEXETIL
     Indication: HYPERTENSION
     Dosage: 4 MILLIGRAM DAILY;
     Route: 048
     Dates: start: 201807
  5. FENOFIBRATE TABLET 80MG  ^TAKEDA TEVA^ [Suspect]
     Active Substance: FENOFIBRATE
     Indication: HYPERLIPIDAEMIA
     Dosage: 80 MILLIGRAM DAILY;
     Route: 048
     Dates: start: 201907
  6. LOXOPROFEN SODIUM HYDRATE [Concomitant]
     Active Substance: LOXOPROFEN SODIUM DIHYDRATE
     Dosage: 120 MILLIGRAM DAILY;
     Route: 048
     Dates: start: 202010

REACTIONS (1)
  - Amyotrophy [Unknown]

NARRATIVE: CASE EVENT DATE: 20201218
